FAERS Safety Report 4619354-6 (Version None)
Quarter: 2005Q2

REPORT INFORMATION
  Report Type: 
  Country: None (occurrence: None)
  Receive Date: 20050321
  Receipt Date: 20040324
  Transmission Date: 20051028
  Serious: Yes (Hospitalization)
  Sender: FDA-Public Use
  Company Number: 2004-03-1764

PATIENT
  Age: 46 Year
  Sex: Male
  Weight: 81.6475 kg

DRUGS (1)
  1. PEG-INTRON [Suspect]
     Dosage: 150 MCG QW SUBCUTANEOUS
     Route: 058
     Dates: start: 20040303

REACTIONS (3)
  - CHEST PAIN [None]
  - MEDICATION ERROR [None]
  - TACHYCARDIA [None]
